FAERS Safety Report 21365810 (Version 2)
Quarter: 2022Q4

REPORT INFORMATION
  Report Type: Report from Study
  Country: US (occurrence: US)
  Receive Date: 20220922
  Receipt Date: 20221014
  Transmission Date: 20230113
  Serious: Yes (Hospitalization, Other)
  Sender: FDA-Public Use
  Company Number: US-GILEAD-2022-0598495

PATIENT
  Age: 49 Year
  Sex: Male

DRUGS (9)
  1. AZTREONAM LYSINE [Suspect]
     Active Substance: AZTREONAM LYSINE
     Indication: Cystic fibrosis lung
     Dosage: 75 MG, TID 28 DAYS ON AND 28 DAYS OFF
     Route: 055
     Dates: start: 2015
  2. HUMALOG [Concomitant]
     Active Substance: INSULIN LISPRO
  3. CREON [Concomitant]
     Active Substance: PANCRELIPASE AMYLASE\PANCRELIPASE LIPASE\PANCRELIPASE PROTEASE
  4. NASONEX [Concomitant]
     Active Substance: MOMETASONE FUROATE
  5. VITAMINS NOS [Concomitant]
     Active Substance: VITAMINS
  6. ALLOPURINOL [Concomitant]
     Active Substance: ALLOPURINOL
  7. URSODIOL [Concomitant]
     Active Substance: URSODIOL
  8. AZITHROMYCIN [Concomitant]
     Active Substance: AZITHROMYCIN
  9. KEFLEX [Concomitant]
     Active Substance: CEPHALEXIN

REACTIONS (2)
  - Embolism arterial [Unknown]
  - Infection [Unknown]
